FAERS Safety Report 16231375 (Version 10)
Quarter: 2020Q4

REPORT INFORMATION
  Report Type: Report from Study
  Country: JP (occurrence: JP)
  Receive Date: 20190424
  Receipt Date: 20201124
  Transmission Date: 20210113
  Serious: Yes (Other)
  Sender: FDA-Public Use
  Company Number: JP-BRISTOL-MYERS SQUIBB COMPANY-BMS-2019-037689

PATIENT
  Age: 67 Year
  Sex: Male
  Weight: 50 kg

DRUGS (13)
  1. NIVOLUMAB [Suspect]
     Active Substance: NIVOLUMAB
     Indication: METASTASES TO KIDNEY
     Dosage: UNK
     Route: 041
     Dates: start: 201904
  2. CORTRIL [Concomitant]
     Active Substance: HYDROCORTISONE
     Dosage: 20 MILLIGRAM
     Route: 065
     Dates: start: 20181115, end: 20181225
  3. CORTRIL [Concomitant]
     Active Substance: HYDROCORTISONE
     Dosage: 10 MILLIGRAM
     Route: 065
     Dates: start: 20190204, end: 20190224
  4. CORTRIL [Concomitant]
     Active Substance: HYDROCORTISONE
     Dosage: 15 MILLIGRAM
     Route: 065
     Dates: start: 20181108, end: 20181111
  5. CORTRIL [Concomitant]
     Active Substance: HYDROCORTISONE
     Dosage: 20 MILLIGRAM
     Route: 065
     Dates: start: 20190327, end: 20190402
  6. CORTRIL [Concomitant]
     Active Substance: HYDROCORTISONE
     Dosage: 10 MILLIGRAM
     Route: 065
     Dates: start: 20190403
  7. CORTRIL [Concomitant]
     Active Substance: HYDROCORTISONE
     Dosage: 5 MILLIGRAM
     Route: 065
     Dates: start: 20190225, end: 20190317
  8. CORTRIL [Concomitant]
     Active Substance: HYDROCORTISONE
     Indication: ADRENAL INSUFFICIENCY
     Dosage: 20 MILLIGRAM
     Route: 065
     Dates: start: 20181101, end: 20181107
  9. CORTRIL [Concomitant]
     Active Substance: HYDROCORTISONE
     Dosage: 10 MILLIGRAM
     Route: 065
     Dates: start: 20190318, end: 20190326
  10. NIVOLUMAB [Suspect]
     Active Substance: NIVOLUMAB
     Indication: METASTATIC RENAL CELL CARCINOMA
     Dosage: 240 MILLIGRAM, Q3WK
     Route: 041
     Dates: start: 20190116
  11. IPILIMUMAB [Suspect]
     Active Substance: IPILIMUMAB
     Indication: METASTATIC RENAL CELL CARCINOMA
     Dosage: 1 MILLIGRAM/KILOGRAM, Q3WK
     Route: 041
     Dates: start: 20190116, end: 20190116
  12. CORTRIL [Concomitant]
     Active Substance: HYDROCORTISONE
     Dosage: 35 MILLIGRAM
     Route: 065
     Dates: start: 20181112, end: 20181114
  13. CORTRIL [Concomitant]
     Active Substance: HYDROCORTISONE
     Dosage: 15 MILLIGRAM
     Route: 065
     Dates: start: 20181226, end: 20190203

REACTIONS (5)
  - Altered state of consciousness [Recovered/Resolved]
  - Cortisol decreased [Unknown]
  - Adrenal insufficiency [Recovering/Resolving]
  - Gastric cancer [Unknown]
  - Prescribed overdose [Unknown]

NARRATIVE: CASE EVENT DATE: 20190318
